FAERS Safety Report 9331710 (Version 6)
Quarter: 2014Q2

REPORT INFORMATION
  Report Type: Spontaneous
  Country: DE (occurrence: DE)
  Receive Date: 20130605
  Receipt Date: 20140617
  Transmission Date: 20141212
  Serious: Yes (Hospitalization)
  Sender: FDA-Public Use
  Company Number: DE-VERTEX PHARMACEUTICALS INC-2013-005306

PATIENT
  Age: 66 Year
  Sex: Female
  Weight: 61 kg

DRUGS (4)
  1. INCIVO [Suspect]
     Indication: HEPATITIS C
     Dosage: 375 MG, 6 DOSES QD
     Route: 048
     Dates: start: 20121120, end: 20130125
  2. PEGASYS [Suspect]
     Indication: HEPATITIS C
     Dosage: 135 ?G, QW
     Route: 058
     Dates: start: 20121120, end: 20130207
  3. COPEGUS [Suspect]
     Indication: HEPATITIS C
     Dosage: 1000 MG, UNK
     Route: 048
     Dates: start: 20121120, end: 20130207
  4. MOVICOL [Concomitant]
     Dosage: UNK
     Route: 065

REACTIONS (29)
  - Hypersensitivity vasculitis [Not Recovered/Not Resolved]
  - Septal panniculitis [Unknown]
  - Sepsis [Unknown]
  - Blood pressure decreased [Unknown]
  - Generalised oedema [Unknown]
  - Empyema [Unknown]
  - Haematoma [Unknown]
  - Obstructive airways disorder [Unknown]
  - Pneumonia [Unknown]
  - Pain [Unknown]
  - Urinary tract infection [Unknown]
  - Pulmonary hypertension [Unknown]
  - Pancytopenia [Unknown]
  - Drug eruption [Unknown]
  - Dermatitis atopic [Unknown]
  - Haemoglobin decreased [Unknown]
  - Adjustment disorder [Not Recovered/Not Resolved]
  - Heart rate increased [Unknown]
  - Decubitus ulcer [Unknown]
  - Pyrexia [Unknown]
  - Decreased appetite [Unknown]
  - Abdominal pain upper [Unknown]
  - Pain of skin [Unknown]
  - Dyspepsia [Unknown]
  - Skin burning sensation [Unknown]
  - Oral candidiasis [Unknown]
  - Haemorrhoids [Unknown]
  - Nausea [Unknown]
  - Pruritus [Unknown]
